FAERS Safety Report 18232049 (Version 2)
Quarter: 2020Q4

REPORT INFORMATION
  Report Type: Spontaneous
  Country: US (occurrence: US)
  Receive Date: 20200904
  Receipt Date: 20201005
  Transmission Date: 20210113
  Serious: No
  Sender: FDA-Public Use
  Company Number: US-GLENMARK PHARMACEUTICALS-2020GMK048629

PATIENT

DRUGS (1)
  1. GABAPENTIN TABLETS USP, 600 MG [Suspect]
     Active Substance: GABAPENTIN
     Indication: PRODUCT USED FOR UNKNOWN INDICATION
     Dosage: UNK; START DATE: YEARS BEFORE (UNSPECIFIED DATE)
     Route: 065

REACTIONS (6)
  - Insomnia [Unknown]
  - Back pain [Unknown]
  - Drug ineffective [Unknown]
  - Depression [Unknown]
  - Neck pain [Unknown]
  - Arthralgia [Unknown]
